FAERS Safety Report 4910736-1 (Version None)
Quarter: 2006Q1

REPORT INFORMATION
  Report Type: 
  Country: None (occurrence: None)
  Receive Date: 20060209
  Receipt Date: 20060209
  Transmission Date: 20060701
  Serious: Yes (Hospitalization)
  Sender: FDA-Public Use
  Company Number: None

PATIENT
  Sex: Female
  Weight: 84.32 kg

DRUGS (12)
  1. IRINOTECAN HCL [Suspect]
     Indication: GLIOBLASTOMA MULTIFORME
     Dosage: 362 MG
     Dates: start: 20060123, end: 20060123
  2. CAMPTOSAR [Suspect]
     Dosage: 180 MG
  3. DEXAMETHASONE SODIUM PHOSPHATE [Concomitant]
  4. DIFLUCAN [Concomitant]
  5. KEPPRA [Concomitant]
  6. SYNTHROID [Concomitant]
  7. TOPROL [Concomitant]
  8. ZOFRAN [Concomitant]
  9. COUMADIN [Concomitant]
  10. LEXAPRO [Concomitant]
  11. VANCOMYCIN [Concomitant]
  12. ZOSYN [Concomitant]

REACTIONS (2)
  - BODY TEMPERATURE INCREASED [None]
  - PULMONARY EMBOLISM [None]
